FAERS Safety Report 7150280-7 (Version None)
Quarter: 2010Q4

REPORT INFORMATION
  Report Type: 
  Country: None (occurrence: None)
  Receive Date: 20101123
  Receipt Date: 20101119
  Transmission Date: 20110411
  Serious: Yes (Hospitalization, Other)
  Sender: FDA-Public Use
  Company Number: 2009-199325-NL

PATIENT
  Age: 31 Year
  Sex: Female
  Weight: 70.3075 kg

DRUGS (1)
  1. NUVARING [Suspect]
     Indication: CONTRACEPTION
     Dates: start: 20080620, end: 20081006

REACTIONS (14)
  - AMENORRHOEA [None]
  - BACK PAIN [None]
  - CONTUSION [None]
  - DEEP VEIN THROMBOSIS [None]
  - FIBROCYSTIC BREAST DISEASE [None]
  - HAEMOPTYSIS [None]
  - JOINT SPRAIN [None]
  - MENSTRUATION IRREGULAR [None]
  - MIGRAINE [None]
  - OROPHARYNGEAL PAIN [None]
  - OTITIS MEDIA [None]
  - PHARYNGITIS [None]
  - PREMATURE MENOPAUSE [None]
  - VAGINITIS BACTERIAL [None]
